FAERS Safety Report 9286222 (Version 1)
Quarter: 2013Q2

REPORT INFORMATION
  Report Type: Report from Study
  Country: FR (occurrence: FR)
  Receive Date: 20130513
  Receipt Date: 20130513
  Transmission Date: 20140414
  Serious: Yes (Hospitalization)
  Sender: FDA-Public Use
  Company Number: FR-GLAXOSMITHKLINE-B0736598A

PATIENT
  Age: 31 Year
  Sex: Female
  Weight: 78 kg

DRUGS (7)
  1. LAPATINIB [Suspect]
     Indication: BREAST CANCER
     Dosage: 1250MG PER DAY
     Route: 048
     Dates: start: 20110329, end: 20110409
  2. CAPECITABINE [Suspect]
     Indication: BREAST CANCER
     Dosage: 2500MG TWICE PER DAY
     Route: 048
     Dates: start: 20110329, end: 20110409
  3. TRASTUZUMAB [Suspect]
     Indication: BREAST CANCER METASTATIC
     Route: 065
     Dates: start: 20130218
  4. KARDEGIC [Concomitant]
     Dosage: 75MG PER DAY
     Dates: start: 20110415, end: 20110422
  5. TRAMADOL HYDROCHLORIDE [Concomitant]
     Indication: ABDOMINAL PAIN
     Dosage: 200MG PER DAY
     Dates: start: 20110415, end: 20110420
  6. TRIFLUCAN [Concomitant]
     Indication: MUCOSAL INFLAMMATION
     Dosage: 50MG PER DAY
     Dates: start: 20110413, end: 20110419
  7. LOVENOX [Concomitant]
     Indication: THROMBOCYTOPENIA
     Dosage: .4ML PER DAY
     Dates: start: 20110418, end: 20110423

REACTIONS (2)
  - Diarrhoea [Recovered/Resolved]
  - Febrile neutropenia [Recovered/Resolved]
